FAERS Safety Report 23453686 (Version 3)
Quarter: 2024Q1

REPORT INFORMATION
  Report Type: Spontaneous
  Country: JP (occurrence: JP)
  Receive Date: 20240129
  Receipt Date: 20240317
  Transmission Date: 20240409
  Serious: Yes (Disabling)
  Sender: FDA-Public Use
  Company Number: JP-002147023-NVSJ2024JP001474

PATIENT
  Age: 51 Year
  Sex: Male
  Weight: 88 kg

DRUGS (5)
  1. ENTRESTO [Suspect]
     Active Substance: SACUBITRIL\VALSARTAN
     Indication: Hypertension
     Dosage: 200 MG, QD, AFTER BREAKFAST
     Route: 048
     Dates: start: 20221108, end: 20230310
  2. CARDENALIN [Concomitant]
     Active Substance: DOXAZOSIN MESYLATE
     Indication: Hypertension
     Dosage: 1 MG, QD, BEFORE BEDTIME
     Route: 048
     Dates: start: 20190829
  3. NIFEDIPINE [Concomitant]
     Active Substance: NIFEDIPINE
     Indication: Hypertension
     Dosage: 40 MG, QD, AFTER BREAKFAST
     Route: 048
     Dates: start: 20190829
  4. FLUTICASONE PROPIONATE\SALMETEROL XINAFOATE [Concomitant]
     Active Substance: FLUTICASONE PROPIONATE\SALMETEROL XINAFOATE
     Indication: Asthma
     Dosage: 1 INHALATIONS, BID
     Dates: start: 20190829
  5. PROCATEROL HYDROCHLORIDE [Concomitant]
     Active Substance: PROCATEROL HYDROCHLORIDE
     Indication: Asthma
     Dosage: AT THE TIME OF ATTACK, 2 INHALATIONS
     Dates: start: 20190829

REACTIONS (1)
  - Erectile dysfunction [Recovered/Resolved]

NARRATIVE: CASE EVENT DATE: 20221101
